FAERS Safety Report 5921503-4 (Version None)
Quarter: 2008Q4

REPORT INFORMATION
  Report Type: 
  Country: None (occurrence: None)
  Receive Date: 20081017
  Receipt Date: 20081008
  Transmission Date: 20090506
  Serious: Yes (Hospitalization)
  Sender: FDA-Public Use
  Company Number: US-JNJFOC-20081002120

PATIENT
  Sex: Male
  Weight: 107.96 kg

DRUGS (6)
  1. REMICADE [Suspect]
     Indication: RHEUMATOID ARTHRITIS
     Route: 042
  2. METOPROLOL TARTRATE [Concomitant]
     Indication: HYPERTENSION
  3. PLAVIX [Concomitant]
  4. ASPIRIN [Concomitant]
  5. LIPITOR [Concomitant]
     Indication: BLOOD CHOLESTEROL INCREASED
  6. UNSPECIFIED MEDICATION [Concomitant]

REACTIONS (1)
  - IN-STENT CORONARY ARTERY RESTENOSIS [None]
